FAERS Safety Report 14015198 (Version 2)
Quarter: 2017Q4

REPORT INFORMATION
  Report Type: Spontaneous
  Country: AT (occurrence: AT)
  Receive Date: 20170927
  Receipt Date: 20171016
  Transmission Date: 20180321
  Serious: Yes (Hospitalization, Other)
  Sender: FDA-Public Use
  Company Number: AT-LUPIN PHARMACEUTICALS INC.-2017-05592

PATIENT
  Age: 78 Year
  Sex: Female

DRUGS (2)
  1. METFORMIN [Suspect]
     Active Substance: METFORMIN HYDROCHLORIDE
     Indication: PREMEDICATION
     Dosage: 850 MG, BID
     Route: 065
  2. INSULINE ASPARTE [Concomitant]
     Indication: PREMEDICATION
     Dosage: UNK UNK, BID (16-0-12)
     Route: 065

REACTIONS (2)
  - Lactic acidosis [Recovering/Resolving]
  - Diabetic ketoacidosis [Recovering/Resolving]
